FAERS Safety Report 7967458-2 (Version None)
Quarter: 2011Q4

REPORT INFORMATION
  Report Type: 
  Country: None (occurrence: None)
  Receive Date: 20111209
  Receipt Date: 20110318
  Transmission Date: 20120403
  Serious: Yes (Hospitalization)
  Sender: FDA-Public Use
  Company Number: US-GLAXOSMITHKLINE-A0753213A

PATIENT
  Age: 62 Year
  Sex: Female

DRUGS (18)
  1. CYMBALTA [Concomitant]
     Indication: DEPRESSION
     Dates: start: 20060302, end: 20061202
  2. ALBUTEROL [Concomitant]
     Indication: ASTHMA
     Dates: start: 20020131, end: 20060301
  3. AMITRIPTYLINE HCL [Concomitant]
     Indication: DEPRESSION
     Dates: start: 20050807, end: 20051207
  4. GUAIFENESIN [Concomitant]
     Dates: start: 20020128, end: 20060328
  5. LISINOPRIL [Concomitant]
     Indication: HYPERTENSION
     Dates: start: 20020805, end: 20061205
  6. METFORMIN HCL [Concomitant]
     Indication: DIABETES MELLITUS
     Dates: start: 20050411, end: 20051211
  7. TEMAZEPAM [Concomitant]
     Indication: INSOMNIA
     Dates: start: 20060329, end: 20070129
  8. AVANDAMET [Suspect]
     Indication: TYPE 2 DIABETES MELLITUS
     Dosage: 2MG PER DAY
     Route: 048
     Dates: start: 20051129, end: 20060301
  9. AVANDIA [Suspect]
     Indication: TYPE 2 DIABETES MELLITUS
     Dosage: 2MG PER DAY
     Route: 048
     Dates: start: 20060302, end: 20070216
  10. PREDNISONE [Concomitant]
     Indication: INFLAMMATION
     Dates: start: 20020131, end: 20060301
  11. PREVACID [Concomitant]
     Indication: DYSPEPSIA
     Dates: start: 20020128, end: 20070101
  12. AZITHROMYCIN [Concomitant]
     Indication: ANTIBIOTIC THERAPY
     Dates: start: 20060125, end: 20060125
  13. WELLBUTRIN [Concomitant]
     Indication: DEPRESSION
     Dates: start: 20020222, end: 20060522
  14. ZOCOR [Concomitant]
     Indication: BLOOD CHOLESTEROL
     Dates: start: 20030626, end: 20060526
  15. AMOXICILLIN [Concomitant]
     Indication: ANTIBIOTIC THERAPY
     Dates: start: 20060914, end: 20060914
  16. DIAZEPAM [Concomitant]
     Indication: ANXIETY
     Dates: start: 20060902, end: 20061202
  17. SIMVASTATIN [Concomitant]
     Indication: BLOOD CHOLESTEROL
     Dates: start: 20060804, end: 20061203
  18. HYDROCHLOROTHIAZIDE [Concomitant]
     Indication: DIURETIC THERAPY
     Dates: start: 20060114, end: 20060614

REACTIONS (1)
  - CARDIAC FAILURE CONGESTIVE [None]
